FAERS Safety Report 9535933 (Version 1)
Quarter: 2013Q2

REPORT INFORMATION
  Report Type: Spontaneous
  Country: US (occurrence: None)
  Receive Date: 20130507
  Receipt Date: 20130507
  Transmission Date: 20140414
  Serious: No
  Sender: FDA-Public Use
  Company Number: PHEH2012US024397

PATIENT
  Sex: 0

DRUGS (2)
  1. AFINITOR (RAD) UNKNOWN [Suspect]
     Indication: ASTROCYTOMA
  2. ZONISAMIDE (ZONISAMIDE) UNKNOWN [Concomitant]

REACTIONS (1)
  - Fatigue [None]
